FAERS Safety Report 9617243 (Version 2)
Quarter: 2013Q4

REPORT INFORMATION
  Report Type: Spontaneous
  Country: JP (occurrence: JP)
  Receive Date: 20131011
  Receipt Date: 20131030
  Transmission Date: 20140711
  Serious: Yes (Hospitalization, Other)
  Sender: FDA-Public Use
  Company Number: JP-PFIZER INC-2013291936

PATIENT
  Age: 79 Year
  Sex: Female

DRUGS (10)
  1. CELECOX [Suspect]
     Dosage: 400 MG, DAILY
     Route: 048
     Dates: start: 20130611
  2. PRIMPERAN [Suspect]
     Dosage: 20 MG, DAILY
     Route: 048
     Dates: start: 20130610
  3. CIMZIA [Suspect]
     Dosage: 200 MG, 1X/DAY
     Route: 058
     Dates: start: 20130409
  4. MUCOSTA [Concomitant]
     Dosage: UNK
     Dates: start: 20130611
  5. NOZLEN [Concomitant]
     Dosage: UNK
     Dates: start: 20120416
  6. HIBON [Concomitant]
     Dosage: UNK
     Dates: start: 20120806
  7. TRAMADOL/ACETAMINOPHEN [Concomitant]
     Dosage: UNK
     Dates: start: 20130430
  8. PREDNISOLONE [Concomitant]
     Dosage: UNK
     Dates: start: 20130712
  9. NABOAL [Concomitant]
     Dosage: UNK
     Dates: start: 20130118
  10. MOHRUS L [Concomitant]
     Dosage: UNK
     Dates: start: 20130712

REACTIONS (2)
  - Pneumonia [Recovered/Resolved]
  - Pyelonephritis [Recovered/Resolved]
